FAERS Safety Report 9436226 (Version 2)
Quarter: 2013Q3

REPORT INFORMATION
  Report Type: Report from Study
  Country: US (occurrence: US)
  Receive Date: 20130801
  Receipt Date: 20130807
  Transmission Date: 20140515
  Serious: Yes (Hospitalization)
  Sender: FDA-Public Use
  Company Number: US-009507513-1307USA014765

PATIENT
  Age: 84 Year
  Sex: Male
  Weight: 68.5 kg

DRUGS (4)
  1. PEG-INTRON [Suspect]
     Dosage: UNK
  2. ASPIRIN [Concomitant]
     Dosage: 81 MG, QD
  3. AVODART [Concomitant]
     Dosage: 0.5 MG DAILY
  4. VITAMINS (UNSPECIFIED) [Concomitant]
     Dosage: 1 TABLET DAILY

REACTIONS (2)
  - Pneumonia [Unknown]
  - Pyrexia [Unknown]
